FAERS Safety Report 9341157 (Version 1)
Quarter: 2013Q2

REPORT INFORMATION
  Report Type: Spontaneous
  Country: DE (occurrence: DE)
  Receive Date: 20130611
  Receipt Date: 20130611
  Transmission Date: 20140414
  Serious: Yes (Other)
  Sender: FDA-Public Use
  Company Number: DE-AMGEN-DEUSP2013036113

PATIENT
  Age: 47 Year
  Sex: Female
  Weight: 68 kg

DRUGS (7)
  1. ENBREL [Suspect]
     Indication: RHEUMATIC DISORDER
     Dosage: 50 MG, WEEKLY
     Route: 065
     Dates: start: 201209, end: 2013
  2. OMEPRAZOL                          /00661201/ [Concomitant]
     Indication: PROPHYLAXIS
     Dosage: 20 MG, 1X/DAY
  3. ARCOXIA [Concomitant]
     Indication: PAIN
     Dosage: 90 MG, AS NEEDED
     Dates: start: 201209
  4. BISOPROLOL [Concomitant]
     Indication: BLOOD PRESSURE
     Dosage: 2.5 MG, 1X/DAY
     Dates: start: 2010
  5. JODETTEN [Concomitant]
     Indication: GOITRE
     Dosage: UNK, 1X/DAY
     Dates: start: 1993
  6. ALLERGOSPASMIN [Concomitant]
     Indication: ASTHMA
     Dosage: UNK UNK, (1 X DAY AS NECESSARY)
     Dates: start: 1998
  7. SYMBICORT [Concomitant]
     Indication: ASTHMA
     Dosage: 1 PUFF, 1X/DAY
     Dates: start: 2010

REACTIONS (4)
  - Hypersensitivity [Recovered/Resolved]
  - Rash [Recovered/Resolved]
  - Pruritus generalised [Recovered/Resolved]
  - Rash pustular [Recovered/Resolved]
